FAERS Safety Report 13535450 (Version 1)
Quarter: 2017Q2

REPORT INFORMATION
  Report Type: Spontaneous
  Country: CA (occurrence: CA)
  Receive Date: 20170511
  Receipt Date: 20170511
  Transmission Date: 20170830
  Serious: Yes (Disabling, Other)
  Sender: FDA-Public Use
  Company Number: CA-JNJFOC-20170508170

PATIENT
  Age: 53 Year
  Sex: Male
  Weight: 83 kg

DRUGS (8)
  1. ASPIRIN. [Concomitant]
     Active Substance: ASPIRIN
     Route: 065
  2. COVERSYL [Concomitant]
     Active Substance: PERINDOPRIL
     Route: 065
  3. METOPROLOL. [Concomitant]
     Active Substance: METOPROLOL
     Route: 065
  4. NAPROXEN. [Concomitant]
     Active Substance: NAPROXEN
     Route: 065
  5. INVOKANA [Suspect]
     Active Substance: CANAGLIFLOZIN
     Indication: TYPE 2 DIABETES MELLITUS
     Route: 048
  6. EZETIMIBE. [Concomitant]
     Active Substance: EZETIMIBE
     Route: 065
  7. JANUMET [Concomitant]
     Active Substance: METFORMIN HYDROCHLORIDE\SITAGLIPTIN PHOSPHATE
     Route: 065
  8. LENOLTECH NO 3 [Concomitant]
     Route: 065

REACTIONS (2)
  - Headache [Recovering/Resolving]
  - Tinnitus [Recovering/Resolving]
